FAERS Safety Report 6530968-9 (Version None)
Quarter: 2010Q1

REPORT INFORMATION
  Report Type: 
  Country: None (occurrence: None)
  Receive Date: 20100108
  Receipt Date: 20090729
  Transmission Date: 20100710
  Serious: No
  Sender: FDA-Public Use
  Company Number: A0799304A

PATIENT
  Age: 66 Year
  Sex: Male

DRUGS (10)
  1. LOVAZA [Suspect]
     Dosage: 2CAP TWICE PER DAY
     Route: 048
     Dates: start: 20090101
  2. UNKNOWN [Concomitant]
  3. FOLIC ACID [Concomitant]
  4. ASPIRIN [Concomitant]
  5. SALAGEN [Concomitant]
  6. PREVACID [Concomitant]
  7. COZAAR [Concomitant]
  8. CYMBALTA [Concomitant]
  9. LISINOPRIL [Concomitant]
  10. METHOTREXATE [Concomitant]

REACTIONS (1)
  - FLATULENCE [None]
